FAERS Safety Report 5701787-8 (Version None)
Quarter: 2008Q2

REPORT INFORMATION
  Report Type: 
  Country: None (occurrence: None)
  Receive Date: 20080410
  Receipt Date: 20080410
  Transmission Date: 20081010
  Serious: No
  Sender: FDA-Public Use
  Company Number: None

PATIENT
  Age: 48 Year
  Sex: Female
  Weight: 68.0396 kg

DRUGS (1)
  1. ACTONEL [Suspect]
     Indication: DRUG USE FOR UNKNOWN INDICATION
     Dosage: 1 PILL ONCE A WEEK
     Dates: start: 20060601, end: 20070201

REACTIONS (1)
  - RASH PRURITIC [None]
